FAERS Safety Report 24596786 (Version 1)
Quarter: 2024Q4

REPORT INFORMATION
  Report Type: Spontaneous
  Country: US (occurrence: US)
  Receive Date: 20241110
  Receipt Date: 20241110
  Transmission Date: 20250114
  Serious: No
  Sender: SANOFI AVENTIS
  Company Number: US-SA-2024SA307439

PATIENT
  Age: 38 Year
  Sex: Female
  Weight: 71.36 kg

DRUGS (1)
  1. DUPIXENT [Suspect]
     Active Substance: DUPILUMAB
     Indication: Dermatitis atopic
     Dosage: 300 MG, QOW
     Route: 058
     Dates: start: 202404

REACTIONS (11)
  - Sleep disorder due to a general medical condition [Unknown]
  - Injection site pain [Unknown]
  - Dermatitis atopic [Unknown]
  - Pruritus [Unknown]
  - Skin weeping [Unknown]
  - Skin exfoliation [Unknown]
  - Dry skin [Unknown]
  - Skin haemorrhage [Unknown]
  - Urticaria [Unknown]
  - Skin swelling [Unknown]
  - Skin injury [Unknown]

NARRATIVE: CASE EVENT DATE: 20240101
